FAERS Safety Report 6289654-5 (Version None)
Quarter: 2009Q3

REPORT INFORMATION
  Report Type: 
  Country: None (occurrence: None)
  Receive Date: 20090730
  Receipt Date: 20080617
  Transmission Date: 20100115
  Serious: No
  Sender: FDA-Public Use
  Company Number: US-BRISTOL-MYERS SQUIBB COMPANY-14149579

PATIENT
  Age: 86 Year
  Sex: Female
  Weight: 73 kg

DRUGS (9)
  1. WARFARIN SODIUM [Suspect]
     Indication: THROMBOSIS
     Route: 048
     Dates: start: 20080301
  2. WARFARIN SODIUM [Suspect]
     Indication: ATRIAL FIBRILLATION
     Route: 048
     Dates: start: 20080301
  3. WARFARIN SODIUM [Suspect]
     Indication: INTRACARDIAC THROMBUS
     Route: 048
     Dates: start: 20080301
  4. COUMADIN [Suspect]
     Indication: THROMBOSIS
     Dosage: 2.5 MG ALTERNATING WITH 1.25 MG
     Dates: start: 20080101
  5. COUMADIN [Suspect]
     Indication: ATRIAL FIBRILLATION
     Dosage: 2.5 MG ALTERNATING WITH 1.25 MG
     Dates: start: 20080101
  6. COUMADIN [Suspect]
     Indication: ATRIAL THROMBOSIS
     Dosage: 2.5 MG ALTERNATING WITH 1.25 MG
     Dates: start: 20080101
  7. DIGOXIN [Concomitant]
  8. TOPROL-XL [Concomitant]
  9. XANAX [Concomitant]

REACTIONS (1)
  - TINNITUS [None]
